FAERS Safety Report 15791282 (Version 2)
Quarter: 2020Q1

REPORT INFORMATION
  Report Type: Spontaneous
  Country: DE (occurrence: DE)
  Receive Date: 20190104
  Receipt Date: 20200319
  Transmission Date: 20200409
  Serious: Yes (Other)
  Sender: FDA-Public Use
  Company Number: PHHY2018DE199456

PATIENT
  Sex: Female

DRUGS (1)
  1. ESTRAMON CONTI 40/130 MIKROGRAMM/24H TRANSDERMALES PFLASTER [Suspect]
     Active Substance: ESTRADIOL\NORETHINDRONE ACETATE
     Indication: PRODUCT USED FOR UNKNOWN INDICATION
     Dosage: UNK
     Route: 062

REACTIONS (2)
  - Product adhesion issue [Unknown]
  - Haemorrhage [Unknown]
